FAERS Safety Report 11459231 (Version 1)
Quarter: 2015Q3

REPORT INFORMATION
  Report Type: Spontaneous
  Country: US (occurrence: US)
  Receive Date: 20150904
  Receipt Date: 20150904
  Transmission Date: 20151125
  Serious: No
  Sender: FDA-Public Use
  Company Number: US-BAUSCH-SP08319

PATIENT
  Sex: Female

DRUGS (1)
  1. COLAZAL [Suspect]
     Active Substance: BALSALAZIDE DISODIUM
     Indication: CROHN^S DISEASE
     Route: 048
     Dates: start: 20140906, end: 20140912

REACTIONS (2)
  - Colitis [Recovering/Resolving]
  - Malaise [Recovering/Resolving]

NARRATIVE: CASE EVENT DATE: 20140910
